FAERS Safety Report 20864072 (Version 2)
Quarter: 2022Q2

REPORT INFORMATION
  Report Type: Spontaneous
  Country: PL (occurrence: PL)
  Receive Date: 20220523
  Receipt Date: 20220526
  Transmission Date: 20220721
  Serious: Yes (Other)
  Sender: FDA-Public Use
  Company Number: PL-ZAMBON SWITZERLAND LTD.-2022PL000008

PATIENT

DRUGS (1)
  1. FOSFOMYCIN TROMETHAMINE [Suspect]
     Active Substance: FOSFOMYCIN TROMETHAMINE
     Indication: Escherichia infection
     Dosage: 3 G, QOD
     Route: 048
     Dates: start: 20220510, end: 20220516

REACTIONS (3)
  - Choking [Recovered/Resolved]
  - Product administration error [Unknown]
  - Product use issue [Unknown]

NARRATIVE: CASE EVENT DATE: 20220510
